FAERS Safety Report 5309672-0 (Version None)
Quarter: 2007Q2

REPORT INFORMATION
  Report Type: 
  Country: None (occurrence: None)
  Receive Date: 20070427
  Receipt Date: 20061013
  Transmission Date: 20071010
  Serious: No
  Sender: FDA-Public Use
  Company Number: US-GLAXOSMITHKLINE-A0623548A

PATIENT
  Age: 41 Year
  Sex: Female

DRUGS (2)
  1. DEXEDRINE [Suspect]
     Indication: ANXIETY
     Dosage: 15MG PER DAY
     Route: 048
  2. DEXEDRINE [Suspect]
     Route: 048

REACTIONS (2)
  - THERAPEUTIC RESPONSE DECREASED [None]
  - THERAPEUTIC RESPONSE UNEXPECTED [None]
